FAERS Safety Report 4649494-7 (Version None)
Quarter: 2005Q2

REPORT INFORMATION
  Report Type: 
  Country: None (occurrence: None)
  Receive Date: 20050427
  Receipt Date: 20050414
  Transmission Date: 20051028
  Serious: Yes (Other)
  Sender: FDA-Public Use
  Company Number: 2005009824

PATIENT
  Sex: Female
  Weight: 56.6996 kg

DRUGS (2)
  1. BEXTRA [Suspect]
     Indication: TENDONITIS
     Dosage: 10 MG (10 MG, 1 IN 1 D), ORAL
     Route: 048
     Dates: start: 20040804, end: 20041031
  2. MOMETASONE FUROATE [Concomitant]

REACTIONS (9)
  - CHAPPED LIPS [None]
  - DRUG INEFFECTIVE [None]
  - ERYTHEMA OF EYELID [None]
  - HYPERSENSITIVITY [None]
  - LIP DRY [None]
  - RASH MACULAR [None]
  - SKIN EXFOLIATION [None]
  - SKIN WRINKLING [None]
  - URTICARIA [None]
